FAERS Safety Report 5421212-4 (Version None)
Quarter: 2007Q3

REPORT INFORMATION
  Report Type: 
  Country: None (occurrence: None)
  Receive Date: 20070821
  Receipt Date: 20070815
  Transmission Date: 20080115
  Serious: Yes (Other)
  Sender: FDA-Public Use
  Company Number: US-ASTRAZENECA-2007UW19677

PATIENT
  Age: 57 Year
  Sex: Female
  Weight: 65.8 kg

DRUGS (10)
  1. ARIMIDEX [Suspect]
     Indication: BREAST CANCER
     Route: 048
     Dates: start: 20060501
  2. BONIVA [Concomitant]
  3. VENLAFAXIINE HCL [Concomitant]
  4. CITRACAL WITH D [Concomitant]
  5. TRIAMTERENE [Concomitant]
  6. HYDROCHLOROTHIAZIDE [Concomitant]
  7. IBUPROFEN TABLETS [Concomitant]
  8. REQUIP [Concomitant]
  9. FLONASE [Concomitant]
  10. FELODIPINE [Concomitant]

REACTIONS (5)
  - CARPAL TUNNEL SYNDROME [None]
  - MUSCULOSKELETAL STIFFNESS [None]
  - RESORPTION BONE INCREASED [None]
  - TRIGGER FINGER [None]
  - WEIGHT INCREASED [None]
